FAERS Safety Report 7045226-6 (Version None)
Quarter: 2010Q4

REPORT INFORMATION
  Report Type: 
  Country: None (occurrence: None)
  Receive Date: 20101014
  Receipt Date: 20100715
  Transmission Date: 20110411
  Serious: No
  Sender: FDA-Public Use
  Company Number: US-ALLERGAN-1009267US

PATIENT
  Age: 56 Year
  Sex: Female

DRUGS (2)
  1. LATISSE [Suspect]
     Indication: GROWTH OF EYELASHES
     Dosage: 1 GTT, UNK
     Route: 061
     Dates: start: 20100520, end: 20100714
  2. PRED MILD [Concomitant]
     Indication: OCULAR HYPERAEMIA

REACTIONS (6)
  - BURNING SENSATION [None]
  - DRUG ADMINISTERED AT INAPPROPRIATE SITE [None]
  - EYE IRRITATION [None]
  - EYELID PAIN [None]
  - OCULAR HYPERAEMIA [None]
  - SKIN HYPERPIGMENTATION [None]
